FAERS Safety Report 13010359 (Version 1)
Quarter: 2016Q4

REPORT INFORMATION
  Report Type: Spontaneous
  Country: US (occurrence: US)
  Receive Date: 20161207
  Receipt Date: 20161207
  Transmission Date: 20170207
  Serious: Yes (Hospitalization)
  Sender: FDA-Public Use
  Company Number: None

PATIENT
  Age: 26 Year
  Sex: Female

DRUGS (1)
  1. TRINTELLIX [Suspect]
     Active Substance: VORTIOXETINE HYDROBROMIDE
     Indication: DEPRESSION

REACTIONS (15)
  - Anxiety [None]
  - Headache [None]
  - Pruritus [None]
  - Dizziness [None]
  - Irritability [None]
  - Insomnia [None]
  - Agitation [None]
  - Fatigue [None]
  - Nausea [None]
  - Anger [None]
  - Depression [None]
  - Aggression [None]
  - Skin burning sensation [None]
  - Pruritus generalised [None]
  - Suicidal ideation [None]

NARRATIVE: CASE EVENT DATE: 20160511
